FAERS Safety Report 7222099-X (Version None)
Quarter: 2011Q1

REPORT INFORMATION
  Report Type: 
  Country: None (occurrence: None)
  Receive Date: 20110112
  Receipt Date: 20110107
  Transmission Date: 20110831
  Serious: No
  Sender: FDA-Public Use
  Company Number: KR-JNJFOC-20100908355

PATIENT
  Sex: Female

DRUGS (4)
  1. ANALGESICS [Concomitant]
     Indication: PAIN MANAGEMENT
     Route: 048
  2. UNKNOWN MEDICATION [Concomitant]
     Indication: HEART VALVE OPERATION
     Route: 048
  3. DURAGESIC-100 [Suspect]
     Indication: PAIN MANAGEMENT
     Dosage: HALF A PATCH OF 12.5 UG/HR
     Route: 062
  4. ANTIHYPERTENSIVE AGENTS [Concomitant]
     Indication: HYPERTENSION
     Route: 048

REACTIONS (3)
  - WRONG TECHNIQUE IN DRUG USAGE PROCESS [None]
  - APPLICATION SITE RASH [None]
  - INCREASED TENDENCY TO BRUISE [None]
